FAERS Safety Report 8080370-6 (Version None)
Quarter: 2012Q1

REPORT INFORMATION
  Report Type: 
  Country: None (occurrence: None)
  Receive Date: 20120130
  Receipt Date: 20120124
  Transmission Date: 20120608
  Serious: Yes (Life-Threatening)
  Sender: FDA-Public Use
  Company Number: FR-PFIZER INC-2012018748

PATIENT
  Age: 50 Year
  Sex: Female

DRUGS (5)
  1. ATORVASTATIN [Suspect]
     Indication: HYPERLIPIDAEMIA
     Dosage: 10 MG, 1X/DAY
     Route: 048
     Dates: start: 20050405, end: 20050901
  2. GINSENG [Suspect]
     Indication: ASTHENIA
     Dosage: UNK
     Route: 048
     Dates: start: 20050914, end: 20051012
  3. ACETAMINOPHEN [Suspect]
     Indication: HEADACHE
     Dosage: 1 G, 1X/DAY
     Route: 042
     Dates: start: 20051018, end: 20051019
  4. PHENOBARBITAL TAB [Suspect]
     Dosage: UNK
     Route: 048
     Dates: start: 20050914, end: 20051012
  5. ACARBOSE [Suspect]
     Indication: DIABETES MELLITUS
     Dosage: 50 MG, 3X/DAY
     Route: 048
     Dates: start: 20050405, end: 20050901

REACTIONS (2)
  - HEPATITIS FULMINANT [None]
  - LIVER TRANSPLANT [None]
